FAERS Safety Report 8274264-0 (Version None)
Quarter: 2012Q2

REPORT INFORMATION
  Report Type: 
  Country: None (occurrence: None)
  Receive Date: 20120411
  Receipt Date: 20120411
  Transmission Date: 20120825
  Serious: No
  Sender: FDA-Public Use
  Company Number: None

PATIENT
  Age: 7 Year
  Sex: Male
  Weight: 25.1 kg

DRUGS (1)
  1. CEFOXITIN [Suspect]
     Indication: PRODUCT USED FOR UNKNOWN INDICATION
     Dosage: 750 MG
     Route: 042
     Dates: start: 20120405, end: 20120405

REACTIONS (2)
  - RASH [None]
  - INFUSION RELATED REACTION [None]
